FAERS Safety Report 18369268 (Version 1)
Quarter: 2020Q4

REPORT INFORMATION
  Report Type: Spontaneous
  Country: BR (occurrence: BR)
  Receive Date: 20201012
  Receipt Date: 20201012
  Transmission Date: 20210114
  Serious: Yes (Other)
  Sender: FDA-Public Use
  Company Number: BR-009507513-2010BRA002292

PATIENT
  Sex: Female
  Weight: 52 kg

DRUGS (5)
  1. LOSARTAN POTASSIUM. [Concomitant]
     Active Substance: LOSARTAN POTASSIUM
  2. HYDROCHLOROTHIAZIDE. [Concomitant]
     Active Substance: HYDROCHLOROTHIAZIDE
  3. TEMODAL [Suspect]
     Active Substance: TEMOZOLOMIDE
     Dosage: 230 MILLIGRAM
     Route: 048
     Dates: start: 20200903, end: 2020
  4. TEMODAL [Suspect]
     Active Substance: TEMOZOLOMIDE
     Indication: PRODUCT USED FOR UNKNOWN INDICATION
     Dosage: UNK
     Route: 048
     Dates: start: 2017
  5. TEMODAL [Suspect]
     Active Substance: TEMOZOLOMIDE
     Dosage: 215 MILLIGRAM
     Route: 048
     Dates: start: 2020

REACTIONS (4)
  - Dysphagia [Not Recovered/Not Resolved]
  - Glioblastoma multiforme [Unknown]
  - Nausea [Unknown]
  - Mental disorder [Unknown]

NARRATIVE: CASE EVENT DATE: 2020
